FAERS Safety Report 7953885-6 (Version None)
Quarter: 2011Q4

REPORT INFORMATION
  Report Type: 
  Country: None (occurrence: None)
  Receive Date: 20111202
  Receipt Date: 20091113
  Transmission Date: 20120403
  Serious: No
  Sender: FDA-Public Use
  Company Number: US-PFIZER INC-K200901424

PATIENT
  Sex: Male

DRUGS (1)
  1. THALITONE [Suspect]
     Dosage: UNK
     Route: 048

REACTIONS (1)
  - HYPERTENSION [None]
